FAERS Safety Report 7463281-6 (Version None)
Quarter: 2011Q2

REPORT INFORMATION
  Report Type: 
  Country: None (occurrence: None)
  Receive Date: 20110506
  Receipt Date: 20110503
  Transmission Date: 20111010
  Serious: Yes (Death)
  Sender: FDA-Public Use
  Company Number: DE-ROCHE-775297

PATIENT
  Sex: Male
  Weight: 74 kg

DRUGS (3)
  1. AVASTIN [Suspect]
     Dosage: DOSE: 7.4
     Route: 065
     Dates: start: 20101227, end: 20110228
  2. GEMZAR [Concomitant]
     Dates: start: 20101227, end: 20110228
  3. CISPLATIN [Concomitant]
     Dates: start: 20101227, end: 20110228

REACTIONS (3)
  - NEOPLASM MALIGNANT [None]
  - DISEASE PROGRESSION [None]
  - NO THERAPEUTIC RESPONSE [None]
